FAERS Safety Report 10128180 (Version 1)
Quarter: 2014Q2

REPORT INFORMATION
  Report Type: Spontaneous
  Country: US (occurrence: US)
  Receive Date: 20140428
  Receipt Date: 20140428
  Transmission Date: 20141212
  Serious: No
  Sender: FDA-Public Use
  Company Number: US-BIOGENIDEC-2014BI022970

PATIENT
  Age: 66 Year
  Sex: Female

DRUGS (7)
  1. TECFIDERA [Suspect]
     Indication: RELAPSING-REMITTING MULTIPLE SCLEROSIS
     Dates: start: 2014
  2. TECFIDERA [Suspect]
     Indication: RELAPSING-REMITTING MULTIPLE SCLEROSIS
     Route: 048
     Dates: start: 20140211
  3. TECFIDERA [Suspect]
     Indication: RELAPSING-REMITTING MULTIPLE SCLEROSIS
     Route: 048
     Dates: start: 20140226
  4. TEMAZEPAM [Concomitant]
  5. AMYTRIPTYLENE [Concomitant]
  6. HYDROCONE [Concomitant]
  7. TRAMADOL [Concomitant]

REACTIONS (2)
  - Fall [Recovered/Resolved]
  - Hot flush [Not Recovered/Not Resolved]
